FAERS Safety Report 7107371-6 (Version None)
Quarter: 2010Q4

REPORT INFORMATION
  Report Type: 
  Country: None (occurrence: None)
  Receive Date: 20101112
  Receipt Date: 20101112
  Transmission Date: 20110411
  Serious: Yes (Hospitalization)
  Sender: FDA-Public Use
  Company Number: None

PATIENT
  Sex: Female
  Weight: 55 kg

DRUGS (3)
  1. CARBOPLATIN [Suspect]
     Dosage: 1131 MG
     Dates: end: 20101021
  2. ERBITUX [Suspect]
     Dosage: 2210 MG
     Dates: end: 20101028
  3. TAXOL [Suspect]
     Dosage: 632 MG
     Dates: end: 20101021

REACTIONS (5)
  - ASTHENIA [None]
  - DEHYDRATION [None]
  - ELECTROLYTE IMBALANCE [None]
  - NAUSEA [None]
  - VOMITING [None]
